FAERS Safety Report 6807201-3 (Version None)
Quarter: 2010Q2

REPORT INFORMATION
  Report Type: 
  Country: None (occurrence: None)
  Receive Date: 20100628
  Receipt Date: 20100628
  Transmission Date: 20101027
  Serious: Yes (Life-Threatening, Hospitalization)
  Sender: FDA-Public Use
  Company Number: None

PATIENT
  Sex: Female
  Weight: 100 kg

DRUGS (1)
  1. FENTANYL [Suspect]
     Indication: PAIN
     Dosage: FENTANYL 50MCG PATCH EVERY 72 HOURS TRANSDERMAL
     Route: 062
     Dates: start: 20100501, end: 20100623

REACTIONS (2)
  - MIOSIS [None]
  - RESPIRATORY RATE DECREASED [None]
